FAERS Safety Report 6620125-X (Version None)
Quarter: 2010Q1

REPORT INFORMATION
  Report Type: 
  Country: None (occurrence: None)
  Receive Date: 20100309
  Receipt Date: 20100210
  Transmission Date: 20100710
  Serious: No
  Sender: FDA-Public Use
  Company Number: JP-ROCHE-689311

PATIENT
  Sex: Female

DRUGS (1)
  1. TAMIFLU [Suspect]
     Indication: INFLUENZA
     Route: 048
     Dates: start: 20091101, end: 20091105

REACTIONS (1)
  - DRUG EXPOSURE DURING PREGNANCY [None]
